FAERS Safety Report 11345543 (Version 1)
Quarter: 2015Q3

REPORT INFORMATION
  Report Type: Spontaneous
  Country: US (occurrence: None)
  Receive Date: 20150805
  Receipt Date: 20150805
  Transmission Date: 20151125
  Serious: No
  Sender: FDA-Public Use
  Company Number: None

PATIENT
  Age: 41 Year
  Sex: Male

DRUGS (7)
  1. LOSARTAN. [Concomitant]
     Active Substance: LOSARTAN
  2. PIPERACILLIN/TAZOBACTAM [Concomitant]
     Active Substance: PIPERACILLIN SODIUM\TAZOBACTAM SODIUM
  3. OXYCODONE [Concomitant]
     Active Substance: OXYCODONE
  4. VANCOMYCIN [Concomitant]
     Active Substance: VANCOMYCIN
  5. BUPOROPION [Concomitant]
  6. WARFARIN [Suspect]
     Active Substance: WARFARIN
     Indication: CELLULITIS
     Dosage: 15 ONCE TUBE
     Dates: start: 20141216, end: 20141216
  7. MONTELUKAST [Concomitant]
     Active Substance: MONTELUKAST SODIUM

REACTIONS (3)
  - Peripheral swelling [None]
  - Pain [None]
  - International normalised ratio increased [None]

NARRATIVE: CASE EVENT DATE: 20141217
